FAERS Safety Report 8285893-2 (Version None)
Quarter: 2012Q2

REPORT INFORMATION
  Report Type: 
  Country: None (occurrence: None)
  Receive Date: 20120414
  Receipt Date: 20120130
  Transmission Date: 20120825
  Serious: Yes (Hospitalization, Other)
  Sender: FDA-Public Use
  Company Number: PHHY2008GB06370

PATIENT
  Sex: Female

DRUGS (1)
  1. EXJADE [Suspect]
     Dosage: 500 MG, BID, 30 MINUTES BEFORE HAVING FOOD
     Route: 048
     Dates: start: 20080413

REACTIONS (3)
  - FATIGUE [None]
  - ANAEMIA [None]
  - HAEMOGLOBIN DECREASED [None]
